FAERS Safety Report 4818513-7 (Version None)
Quarter: 2005Q4

REPORT INFORMATION
  Report Type: 
  Country: None (occurrence: None)
  Receive Date: 20051031
  Receipt Date: 20051031
  Transmission Date: 20060501
  Serious: Yes (Hospitalization)
  Sender: FDA-Public Use
  Company Number: None

PATIENT
  Age: 58 Year
  Sex: Male
  Weight: 86.1834 kg

DRUGS (4)
  1. DOXORUBICIN [Suspect]
     Indication: HODGKIN'S DISEASE
     Dosage: 48 MG IVP
     Route: 042
     Dates: start: 20050804
  2. BLEOMYCIN [Suspect]
     Indication: HODGKIN'S DISEASE
     Dosage: 19 UNITS IVP
     Route: 042
     Dates: start: 20050804
  3. VINBLASTINE [Suspect]
     Indication: HODGKIN'S DISEASE
     Dosage: 11.5 MG IVP
     Route: 042
     Dates: start: 20050804
  4. DACARBAZINE [Suspect]
     Indication: HODGKIN'S DISEASE
     Dosage: 715 MG IVPB
     Route: 042
     Dates: start: 20050804

REACTIONS (1)
  - FEBRILE NEUTROPENIA [None]
